FAERS Safety Report 9458764 (Version 1)
Quarter: 2013Q3

REPORT INFORMATION
  Report Type: Report from Study
  Country: US (occurrence: US)
  Receive Date: 20130814
  Receipt Date: 20130814
  Transmission Date: 20140515
  Serious: Yes (Hospitalization, Other)
  Sender: FDA-Public Use
  Company Number: US-ABBOTT-13P-163-1130290-00

PATIENT
  Age: 69 Year
  Sex: Female

DRUGS (16)
  1. HUMIRA [Suspect]
     Indication: RHEUMATOID ARTHRITIS
  2. METHOTREXATE [Concomitant]
     Indication: RHEUMATOID ARTHRITIS
  3. SPIRIVA [Concomitant]
     Indication: ASTHMA
     Dosage: INHALER
  4. PULMICORT [Concomitant]
     Indication: ASTHMA
     Dosage: INHALER, 2 PUFFS DAILY
  5. SALSALATE [Concomitant]
     Indication: NEURALGIA
  6. SALSALATE [Concomitant]
     Indication: MYALGIA
  7. AMITRIPTYLINE [Concomitant]
     Indication: NEURALGIA
     Dosage: 3 TO 4 TIMES PER DAY
  8. AMITRIPTYLINE [Concomitant]
     Indication: MYALGIA
  9. DEXILANT [Concomitant]
     Indication: GASTROOESOPHAGEAL REFLUX DISEASE
  10. TRIAMTERENE/HCTZ [Concomitant]
     Indication: HYPERTENSION
     Dosage: 3.75/25MG DAILY
  11. INDERAL [Concomitant]
     Indication: HYPERTENSION
  12. INDERAL [Concomitant]
     Indication: MIGRAINE PROPHYLAXIS
  13. IMITREX [Concomitant]
     Indication: MIGRAINE
  14. SYNTHROID [Concomitant]
     Indication: HYPOTHYROIDISM
  15. PREMARIN [Concomitant]
     Indication: OSTEOPOROSIS
  16. SUDAFEDRIN HCL [Concomitant]
     Indication: HYPERSENSITIVITY
     Dosage: 3 TO 4 TIMES PER DAY

REACTIONS (8)
  - Rotator cuff syndrome [Recovered/Resolved]
  - Arthralgia [Recovered/Resolved]
  - Arthralgia [Not Recovered/Not Resolved]
  - Injection site pain [Not Recovered/Not Resolved]
  - Injection site reaction [Not Recovered/Not Resolved]
  - Injection site oedema [Recovered/Resolved]
  - Joint stiffness [Not Recovered/Not Resolved]
  - Joint stiffness [Recovered/Resolved]
